FAERS Safety Report 5974026-0 (Version None)
Quarter: 2008Q4

REPORT INFORMATION
  Report Type: 
  Country: None (occurrence: None)
  Receive Date: 20081125
  Receipt Date: 20081110
  Transmission Date: 20090506
  Serious: Yes (Other)
  Sender: FDA-Public Use
  Company Number: 1000001282

PATIENT
  Sex: Male

DRUGS (2)
  1. CITALOPRAM HYDROBROMIDE [Suspect]
     Dosage: ORAL
     Route: 048
  2. CLOPIXOL (INJECTION) [Suspect]
     Dosage: INTRAMUSCULAR
     Route: 030

REACTIONS (3)
  - CONDITION AGGRAVATED [None]
  - RENAL FAILURE CHRONIC [None]
  - SEDATION [None]
